FAERS Safety Report 13531907 (Version 4)
Quarter: 2019Q4

REPORT INFORMATION
  Report Type: Report from Study
  Country: TR (occurrence: TR)
  Receive Date: 20170510
  Receipt Date: 20191017
  Transmission Date: 20200122
  Serious: Yes (Hospitalization, Other)
  Sender: FDA-Public Use
  Company Number: TR-ALEXION-A201704769

PATIENT
  Age: 4 Month
  Sex: Male
  Weight: 4.5 kg

DRUGS (2)
  1. STRENSIQ [Suspect]
     Active Substance: ASFOTASE ALFA
     Indication: HYPOPHOSPHATASIA
     Dosage: 2 MG/KG, Q 3 DAYS
     Route: 058
     Dates: start: 20170404
  2. STRENSIQ [Suspect]
     Active Substance: ASFOTASE ALFA
     Dosage: 3 MG/KG, Q3W
     Route: 065

REACTIONS (4)
  - Seizure [Recovered/Resolved]
  - Tachypnoea [Unknown]
  - Respiratory distress [Unknown]
  - Tooth loss [Unknown]

NARRATIVE: CASE EVENT DATE: 201705
